FAERS Safety Report 10094822 (Version 1)
Quarter: 2014Q2

REPORT INFORMATION
  Report Type: Spontaneous
  Country: ES (occurrence: None)
  Receive Date: 20140418
  Receipt Date: 20140418
  Transmission Date: 20141212
  Serious: Yes (Other)
  Sender: FDA-Public Use
  Company Number: ES-DEXPHARM-20140169

PATIENT
  Age: 57 Year
  Sex: Female

DRUGS (3)
  1. DICLOFENAC [Suspect]
     Dosage: SEP. DOSAGES/INTERVAL: 1IN 2 DAYS
     Dates: start: 199504, end: 199510
  2. NIFEDIPINE [Concomitant]
  3. RANITIDINE [Concomitant]

REACTIONS (2)
  - Pseudoporphyria [None]
  - Treatment noncompliance [None]
